FAERS Safety Report 4867383-X (Version None)
Quarter: 2005Q4

REPORT INFORMATION
  Report Type: 
  Country: None (occurrence: None)
  Receive Date: 20051222
  Receipt Date: 20051202
  Transmission Date: 20060501
  Serious: Yes (Hospitalization, Other)
  Sender: FDA-Public Use
  Company Number: USA040979186

PATIENT
  Age: 78 Year
  Sex: Male
  Weight: 90 kg

DRUGS (11)
  1. HUMALOG [Suspect]
     Indication: DIABETES MELLITUS
     Dosage: 28 U, 2/D,
     Dates: start: 20041101
  2. HUMALOG [Suspect]
     Indication: DIABETES MELLITUS
     Dosage: SEE IMAGE
     Dates: start: 20050101
  3. HUMALOG [Suspect]
     Indication: DIABETES MELLITUS
     Dosage: SEE IMAGE
     Dates: start: 20051101
  4. HUMULIN (HUMAN INSULIN (RDNA ORIGIN) NPH) PEN, DISPOSABLE [Suspect]
     Dosage: 15 U,
  5. SPIRIVA [Suspect]
     Dates: start: 20041101
  6. HUMULIN NPH PEN (HUMULIN N PEN) PEN, DISPOSABLE [Concomitant]
  7. MICROGANSE (GLIBENCLAMIDE) [Concomitant]
  8. GLUCOPHAGE [Concomitant]
  9. LOPRESSOR [Concomitant]
  10. LIPITOR [Concomitant]
  11. COUMADIN [Concomitant]

REACTIONS (10)
  - ARTHRITIS [None]
  - CATARACT OPERATION [None]
  - CORONARY ARTERY SURGERY [None]
  - DEVICE MALFUNCTION [None]
  - DIABETES MELLITUS INADEQUATE CONTROL [None]
  - HEART VALVE REPLACEMENT [None]
  - PHARMACEUTICAL PRODUCT COMPLAINT [None]
  - PNEUMONIA [None]
  - PULMONARY OEDEMA [None]
  - RETINAL HAEMORRHAGE [None]
